FAERS Safety Report 4662493-4 (Version None)
Quarter: 2005Q2

REPORT INFORMATION
  Report Type: 
  Country: None (occurrence: None)
  Receive Date: 20050512
  Receipt Date: 20050425
  Transmission Date: 20051028
  Serious: Yes (Other)
  Sender: FDA-Public Use
  Company Number: 213785

PATIENT
  Age: 75 Year
  Sex: Female
  Weight: 64 kg

DRUGS (6)
  1. HERCEPTIN [Suspect]
     Indication: BREAST CANCER METASTATIC
     Dosage: SEE IMAGE
     Route: 042
     Dates: start: 20041111, end: 20041111
  2. HERCEPTIN [Suspect]
     Indication: BREAST CANCER METASTATIC
     Dosage: SEE IMAGE
     Route: 042
     Dates: start: 20041202, end: 20041222
  3. HERCEPTIN [Suspect]
     Indication: BREAST CANCER METASTATIC
     Dosage: SEE IMAGE
     Route: 042
     Dates: start: 20050122, end: 20050316
  4. DOCETAXEL (DOCETAXEL) [Suspect]
     Indication: BREAST CANCER METASTATIC
     Dosage: 100 MG/M2, Q3W, INTRAVENOUS
     Route: 042
     Dates: start: 20041111, end: 20041111
  5. SIMVASTATIN [Concomitant]
  6. AMLODIPINE BESYLATE [Concomitant]

REACTIONS (5)
  - HYPOALBUMINAEMIA [None]
  - METASTASES TO CENTRAL NERVOUS SYSTEM [None]
  - NEPHROTIC SYNDROME [None]
  - PROTEINURIA [None]
  - THERAPEUTIC RESPONSE DECREASED [None]
